FAERS Safety Report 4327934-0 (Version None)
Quarter: 2004Q1

REPORT INFORMATION
  Report Type: 
  Country: None (occurrence: None)
  Receive Date: 20040325
  Receipt Date: 20040312
  Transmission Date: 20041129
  Serious: Yes (Hospitalization)
  Sender: FDA-Public Use
  Company Number: 2004017912

PATIENT
  Age: 75 Year
  Sex: Female
  Weight: 84.369 kg

DRUGS (1)
  1. LIPITOR [Suspect]
     Indication: BLOOD CHOLESTEROL INCREASED
     Dosage: (DAILY), ORAL
     Route: 048
     Dates: start: 19990101, end: 20030101

REACTIONS (4)
  - CARDIAC OPERATION [None]
  - MUSCLE INJURY [None]
  - PAIN IN EXTREMITY [None]
  - PERIARTHRITIS [None]
